FAERS Safety Report 14934514 (Version 1)
Quarter: 2018Q2

REPORT INFORMATION
  Report Type: Spontaneous
  Country: US (occurrence: US)
  Receive Date: 20180505
  Receipt Date: 20180505
  Transmission Date: 20180711
  Serious: Yes (Hospitalization)
  Sender: FDA-Public Use
  Company Number: None

PATIENT
  Age: 21 Year
  Sex: Male
  Weight: 71.3 kg

DRUGS (3)
  1. PALONSETRON [Concomitant]
  2. CISPLATIN. [Suspect]
     Active Substance: CISPLATIN
     Dates: end: 20180314
  3. FOSAPREPITANT [Concomitant]
     Active Substance: FOSAPREPITANT

REACTIONS (5)
  - Oropharyngeal pain [None]
  - Dry mouth [None]
  - Malnutrition [None]
  - Odynophagia [None]
  - Weight decreased [None]

NARRATIVE: CASE EVENT DATE: 20180315
